FAERS Safety Report 9279962 (Version 2)
Quarter: 2013Q3

REPORT INFORMATION
  Report Type: Report from Study
  Country: DE (occurrence: DE)
  Receive Date: 20130509
  Receipt Date: 20130722
  Transmission Date: 20140515
  Serious: Yes (Hospitalization)
  Sender: FDA-Public Use
  Company Number: DE-ROCHE-1220740

PATIENT
  Age: 76 Year
  Sex: Female
  Weight: 58 kg

DRUGS (4)
  1. BEVACIZUMAB [Suspect]
     Indication: BREAST CANCER
     Dosage: LAST DOSE PRIOR TO SAE ON 29/APR/2013
     Route: 042
     Dates: start: 20121207
  2. CARBOPLATIN [Suspect]
     Indication: BREAST CANCER
     Dosage: LAST DOSE PRIOR TO SAE ON 29/APR/2013
     Route: 042
     Dates: start: 20121207
  3. MYOCET [Suspect]
     Indication: BREAST CANCER
     Dosage: LAST DOSE PRIOR TO SAE ON 29/APR/2013
     Route: 042
     Dates: start: 20121207
  4. PACLITAXEL [Suspect]
     Indication: BREAST CANCER
     Dosage: LAST DOSE PRIOR TO SAE ON 29/APR/2013
     Route: 042
     Dates: start: 20121207

REACTIONS (2)
  - Onycholysis [Recovered/Resolved]
  - Nail infection [Recovered/Resolved]
